FAERS Safety Report 9293441 (Version 1)
Quarter: 2013Q2

REPORT INFORMATION
  Report Type: Spontaneous
  Country: US (occurrence: US)
  Receive Date: 20130516
  Receipt Date: 20130516
  Transmission Date: 20140414
  Serious: Yes (Other)
  Sender: FDA-Public Use
  Company Number: US-BAYER-2013-059295

PATIENT
  Age: 75 Year
  Sex: Female
  Weight: 78 kg

DRUGS (2)
  1. ALEVE CAPLET [Suspect]
     Indication: BACK PAIN
     Dosage: UNK
     Route: 048
     Dates: start: 2012, end: 20130328
  2. BAYER GENUINE ASPIRIN ORIGINAL STRENGTH [Concomitant]
     Dosage: 1 DF, QD
     Route: 048

REACTIONS (8)
  - Dyspnoea [Recovered/Resolved]
  - Hypoaesthesia [Not Recovered/Not Resolved]
  - Hypoaesthesia oral [Recovered/Resolved]
  - Wheezing [Recovered/Resolved]
  - Dysphagia [Recovered/Resolved]
  - Skin exfoliation [Not Recovered/Not Resolved]
  - Dry mouth [Recovered/Resolved]
  - Mouth haemorrhage [Recovered/Resolved]
